FAERS Safety Report 4477159-3 (Version None)
Quarter: 2004Q4

REPORT INFORMATION
  Report Type: 
  Country: None (occurrence: None)
  Receive Date: 20041018
  Receipt Date: 20030407
  Transmission Date: 20050328
  Serious: Yes (Hospitalization, Other)
  Sender: FDA-Public Use
  Company Number: US-MERCK-0304USA00833

PATIENT
  Age: 47 Year
  Sex: Female
  Weight: 52 kg

DRUGS (16)
  1. ELAVIL [Concomitant]
     Route: 048
  2. ASPIRIN [Concomitant]
     Route: 065
  3. ZITHROMAX [Concomitant]
     Indication: INFECTION
     Route: 065
     Dates: start: 20001116, end: 20001122
  4. BUSPAR [Concomitant]
     Route: 065
  5. CARDIZEM [Concomitant]
     Indication: CHEST DISCOMFORT
     Route: 065
     Dates: start: 19991221
  6. PROZAC [Concomitant]
     Route: 065
  7. NEURONTIN [Concomitant]
     Route: 065
  8. ISMO [Concomitant]
     Indication: CHEST DISCOMFORT
     Route: 065
     Dates: start: 19991221
  9. MORPHINE SULFATE [Concomitant]
     Route: 048
     Dates: start: 20001117
  10. MS CONTIN [Concomitant]
     Route: 048
  11. MS CONTIN [Concomitant]
     Route: 065
  12. MS CONTIN [Concomitant]
     Route: 065
  13. VIOXX [Suspect]
     Indication: BACK DISORDER
     Route: 048
     Dates: start: 20001116, end: 20001122
  14. VIOXX [Suspect]
     Route: 048
     Dates: start: 20001123, end: 20001201
  15. VIOXX [Suspect]
     Indication: ARTHROPATHY
     Route: 048
     Dates: start: 20001116, end: 20001122
  16. VIOXX [Suspect]
     Route: 048
     Dates: start: 20001123, end: 20001201

REACTIONS (19)
  - ANGIONEUROTIC OEDEMA [None]
  - ARTHRALGIA [None]
  - CELLULITIS [None]
  - CHEST PAIN [None]
  - DEPRESSION [None]
  - DRUG HYPERSENSITIVITY [None]
  - GASTROINTESTINAL INJURY [None]
  - GOUT [None]
  - HYPERTENSION [None]
  - INSOMNIA [None]
  - INTERVERTEBRAL DISC DISORDER [None]
  - JOINT INJURY [None]
  - OEDEMA PERIPHERAL [None]
  - PALPITATIONS [None]
  - PNEUMONIA [None]
  - RASH [None]
  - SKIN DISCOLOURATION [None]
  - SYNOVITIS [None]
  - URINE OUTPUT DECREASED [None]
